FAERS Safety Report 8493528-9 (Version None)
Quarter: 2012Q3

REPORT INFORMATION
  Report Type: 
  Country: None (occurrence: None)
  Receive Date: 20120706
  Receipt Date: 20120629
  Transmission Date: 20120928
  Serious: Yes (Other)
  Sender: FDA-Public Use
  Company Number: US-ASTRAZENECA-2012SE35484

PATIENT
  Age: 57 Year
  Sex: Female

DRUGS (2)
  1. NEXIUM [Suspect]
     Route: 048
  2. REVLIMID [Concomitant]

REACTIONS (4)
  - HERNIA [None]
  - GASTRITIS [None]
  - MALAISE [None]
  - MULTIPLE MYELOMA [None]
